FAERS Safety Report 9062746 (Version 6)
Quarter: 2018Q2

REPORT INFORMATION
  Report Type: Spontaneous
  Country: US (occurrence: US)
  Receive Date: 20130213
  Receipt Date: 20180515
  Transmission Date: 20180711
  Serious: Yes (Hospitalization)
  Sender: FDA-Public Use
  Company Number: US-PFIZER INC-2013054628

PATIENT
  Age: 62 Year
  Sex: Female
  Weight: 80.27 kg

DRUGS (15)
  1. VERAPAMIL [Concomitant]
     Active Substance: VERAPAMIL HYDROCHLORIDE
     Dosage: 240 MG, DAILY
     Dates: start: 2010
  2. IBUPROFEN. [Concomitant]
     Active Substance: IBUPROFEN
     Dosage: 600 MG, AS NEEDED
     Dates: start: 1998
  3. SOMAVERT [Suspect]
     Active Substance: PEGVISOMANT
     Indication: ACROMEGALY
     Dosage: UNK
  4. TOPAMAX [Concomitant]
     Active Substance: TOPIRAMATE
     Dosage: 50 MG, DAILY
     Dates: start: 2008, end: 2017
  5. ZYRTEC [Concomitant]
     Active Substance: CETIRIZINE HYDROCHLORIDE
     Dosage: UNK, AS NEEDED
     Dates: start: 2014
  6. LEXAPRO [Concomitant]
     Active Substance: ESCITALOPRAM OXALATE
     Dosage: 10 MG, DAILY
     Dates: start: 2009
  7. IMITREX [Concomitant]
     Active Substance: SUMATRIPTAN SUCCINATE
     Dosage: 20 MG, AS NEEDED
     Route: 045
     Dates: start: 2000
  8. SOMAVERT [Suspect]
     Active Substance: PEGVISOMANT
     Dosage: 10 MG, 1X/DAY
     Dates: start: 2014
  9. NEXIUM [Concomitant]
     Active Substance: ESOMEPRAZOLE MAGNESIUM
     Dosage: 40 MG, DAILY
     Dates: start: 2000, end: 2016
  10. CRESTOR [Concomitant]
     Active Substance: ROSUVASTATIN CALCIUM
     Dosage: 10 MG, EVERY OTHER DAY
     Dates: start: 2006
  11. CALCITONIN [Concomitant]
     Active Substance: CALCITONIN
     Dosage: 200 IU, AS NEEDED
     Route: 045
     Dates: start: 2008, end: 2016
  12. OMEPRAZOLE. [Concomitant]
     Active Substance: OMEPRAZOLE
     Dosage: UNK
     Dates: start: 2017
  13. SOMAVERT [Suspect]
     Active Substance: PEGVISOMANT
     Indication: HYPOTHALAMO-PITUITARY DISORDER
     Dosage: 10 MG, DAILY
     Route: 058
     Dates: start: 20130123
  14. CABERGOLINE. [Concomitant]
     Active Substance: CABERGOLINE
     Dosage: 0.5 MG, TWICE PER WEEK
     Dates: start: 2010, end: 2016
  15. LEVOTHYROXINE. [Concomitant]
     Active Substance: LEVOTHYROXINE
     Dosage: 75 UG, UNK
     Dates: start: 2011

REACTIONS (12)
  - Injection site bruising [Unknown]
  - Vomiting [Recovered/Resolved]
  - Fatigue [Unknown]
  - Sinusitis [Recovered/Resolved]
  - Nausea [Recovered/Resolved]
  - Oropharyngeal pain [Unknown]
  - Paranasal sinus hypersecretion [Unknown]
  - Pain [Unknown]
  - Back pain [Not Recovered/Not Resolved]
  - Migraine [Unknown]
  - Headache [Recovered/Resolved]
  - Dyspnoea [Recovered/Resolved]
